FAERS Safety Report 4748558-7 (Version None)
Quarter: 2005Q3

REPORT INFORMATION
  Report Type: 
  Country: None (occurrence: None)
  Receive Date: 20050818
  Receipt Date: 20050818
  Transmission Date: 20060218
  Serious: Yes (Hospitalization)
  Sender: FDA-Public Use
  Company Number: None

PATIENT
  Age: 69 Year
  Sex: Male
  Weight: 77 kg

DRUGS (4)
  1. GEMCITABINE    1000MG    LILLY [Suspect]
     Indication: MYCOSIS FUNGOIDES
     Dosage: 2337MG   QWEEK X3, REPEATX1  INTRAVENOU
     Route: 042
     Dates: start: 20050127, end: 20050310
  2. PRILOSEC [Concomitant]
  3. PREDNISONE [Concomitant]
  4. XANAX [Concomitant]

REACTIONS (3)
  - HYPOXIA [None]
  - LUNG INFILTRATION [None]
  - PRODUCTIVE COUGH [None]
